FAERS Safety Report 4674488-5 (Version None)
Quarter: 2005Q2

REPORT INFORMATION
  Report Type: 
  Country: None (occurrence: None)
  Receive Date: 20050526
  Receipt Date: 20050518
  Transmission Date: 20051028
  Serious: Yes (Hospitalization)
  Sender: FDA-Public Use
  Company Number: US-JNJFOC-20050405375

PATIENT
  Age: 44 Year
  Sex: Female
  Weight: 65.77 kg

DRUGS (5)
  1. LEVAQUIN [Suspect]
     Indication: KIDNEY INFECTION
     Route: 049
  2. PHENERGAN [Concomitant]
     Indication: NAUSEA
  3. TORADOL [Concomitant]
     Indication: PAIN
  4. TORADOL [Concomitant]
     Indication: NAUSEA
  5. MORPHINE [Concomitant]
     Indication: PAIN
     Route: 042

REACTIONS (6)
  - DEHYDRATION [None]
  - DRUG DISPENSING ERROR [None]
  - GALLBLADDER DISORDER [None]
  - OVERDOSE [None]
  - RENAL FAILURE ACUTE [None]
  - VOMITING [None]
